FAERS Safety Report 5904473-4 (Version None)
Quarter: 2008Q3

REPORT INFORMATION
  Report Type: 
  Country: None (occurrence: None)
  Receive Date: 20080930
  Receipt Date: 20080930
  Transmission Date: 20090109
  Serious: Yes (Hospitalization)
  Sender: FDA-Public Use
  Company Number: None

PATIENT
  Age: 55 Year
  Sex: Male

DRUGS (2)
  1. SALSALATE [Suspect]
     Indication: PAIN
     Dosage: 750 MG TID PO
     Route: 048
     Dates: start: 20080422, end: 20080918
  2. WARFARIN SODIUM [Suspect]
     Indication: DEEP VEIN THROMBOSIS
     Dates: start: 20080518, end: 20080918

REACTIONS (2)
  - GASTRIC HAEMORRHAGE [None]
  - GASTRITIS [None]
